FAERS Safety Report 20905015 (Version 5)
Quarter: 2022Q2

REPORT INFORMATION
  Report Type: Spontaneous
  Country: AU (occurrence: AU)
  Receive Date: 20220602
  Receipt Date: 20220624
  Transmission Date: 20220721
  Serious: Yes (Other)
  Sender: FDA-Public Use
  Company Number: AU-BAYER-2022A076927

PATIENT
  Age: 53 Year
  Sex: Female

DRUGS (3)
  1. PRIMOVIST [Suspect]
     Active Substance: GADOXETATE DISODIUM
     Dosage: 10 ML
  2. PRIMOVIST [Suspect]
     Active Substance: GADOXETATE DISODIUM
     Dosage: UNK
  3. PRIMOVIST [Suspect]
     Active Substance: GADOXETATE DISODIUM
     Dosage: UNK

REACTIONS (5)
  - Wound haemorrhage [Recovered/Resolved]
  - Limb injury [None]
  - Product package associated injury [None]
  - Product use issue [None]
  - Syringe issue [None]
